FAERS Safety Report 7796919-4 (Version None)
Quarter: 2011Q4

REPORT INFORMATION
  Report Type: 
  Country: None (occurrence: None)
  Receive Date: 20111005
  Receipt Date: 20110928
  Transmission Date: 20120403
  Serious: Yes (Other)
  Sender: FDA-Public Use
  Company Number: US-NAPPMUNDI-USA-2011-0075183

PATIENT
  Sex: Male

DRUGS (1)
  1. OXYCONTIN [Suspect]
     Indication: PRODUCT USED FOR UNKNOWN INDICATION
     Dosage: 80 MG, BID

REACTIONS (10)
  - MONOPLEGIA [None]
  - VISION BLURRED [None]
  - FEELING COLD [None]
  - HALLUCINATION [None]
  - HYPERHIDROSIS [None]
  - FACIAL NEURALGIA [None]
  - HOT FLUSH [None]
  - MEMORY IMPAIRMENT [None]
  - HALLUCINATION, VISUAL [None]
  - EYE IRRITATION [None]
